FAERS Safety Report 6604617-5 (Version None)
Quarter: 2010Q1

REPORT INFORMATION
  Report Type: 
  Country: None (occurrence: None)
  Receive Date: 20100226
  Receipt Date: 20100119
  Transmission Date: 20100710
  Serious: No
  Sender: FDA-Public Use
  Company Number: A0837242A

PATIENT
  Age: 63 Year
  Sex: Female
  Weight: 63.6 kg

DRUGS (3)
  1. LAMICTAL CD [Suspect]
     Dosage: 150MG PER DAY
     Route: 048
     Dates: start: 20091023, end: 20091229
  2. TREXIMET [Concomitant]
  3. ALPRAZOLAM [Concomitant]

REACTIONS (7)
  - DIZZINESS [None]
  - FEELING DRUNK [None]
  - GAIT DISTURBANCE [None]
  - MIGRAINE [None]
  - NAUSEA [None]
  - SOMNOLENCE [None]
  - VOMITING [None]
